FAERS Safety Report 22003725 (Version 1)
Quarter: 2023Q1

REPORT INFORMATION
  Report Type: Spontaneous
  Country: US (occurrence: US)
  Receive Date: 20230217
  Receipt Date: 20230217
  Transmission Date: 20230418
  Serious: Yes (Other)
  Sender: FDA-Public Use
  Company Number: US-drreddys-LIT/USA/23/0161202

PATIENT
  Age: 42 Year
  Sex: Female

DRUGS (6)
  1. CETIRIZINE [Suspect]
     Active Substance: CETIRIZINE HYDROCHLORIDE
     Indication: Hereditary angioedema
  2. FAMOTIDINE [Suspect]
     Active Substance: FAMOTIDINE
     Indication: Hereditary angioedema
  3. MONTELUKAST [Suspect]
     Active Substance: MONTELUKAST SODIUM
     Indication: Hereditary angioedema
  4. FEXOFENADINE [Suspect]
     Active Substance: FEXOFENADINE HYDROCHLORIDE
     Indication: Hereditary angioedema
  5. ZYFLO [Suspect]
     Active Substance: ZILEUTON
     Indication: Hereditary angioedema
  6. CROMOLYN [Suspect]
     Active Substance: CROMOLYN
     Indication: Hereditary angioedema

REACTIONS (1)
  - Drug ineffective for unapproved indication [Unknown]
